FAERS Safety Report 4635416-1 (Version None)
Quarter: 2005Q2

REPORT INFORMATION
  Report Type: 
  Country: None (occurrence: None)
  Receive Date: 20050413
  Receipt Date: 20050328
  Transmission Date: 20051028
  Serious: Yes (Other)
  Sender: FDA-Public Use
  Company Number: TRP_0092_2005

PATIENT
  Age: 50 Year
  Sex: Female

DRUGS (4)
  1. RIBASPHERE [Suspect]
     Indication: HEPATITIS C
     Dates: start: 20040609
  2. PEG-INTRON [Suspect]
     Indication: HEPATITIS C
     Dates: start: 20040609
  3. PAXIL [Concomitant]
  4. ZANTAC [Concomitant]

REACTIONS (1)
  - VISUAL DISTURBANCE [None]
